FAERS Safety Report 5480634-6 (Version None)
Quarter: 2007Q4

REPORT INFORMATION
  Report Type: 
  Country: None (occurrence: None)
  Receive Date: 20071009
  Receipt Date: 20071001
  Transmission Date: 20080405
  Serious: No
  Sender: FDA-Public Use
  Company Number: US-BAXTER-2007BH008049

PATIENT
  Age: 86 Year
  Sex: Female

DRUGS (7)
  1. FORANE [Suspect]
     Indication: DRUG USE FOR UNKNOWN INDICATION
     Dosage: DOSE UNIT:UNKNOWN
     Route: 055
  2. PROSTIGMIN BROMIDE [Suspect]
     Indication: DRUG USE FOR UNKNOWN INDICATION
     Route: 065
  3. EPHEDRINE [Suspect]
     Indication: DRUG USE FOR UNKNOWN INDICATION
     Route: 065
  4. ATROPINE SULFATE [Suspect]
     Indication: DRUG USE FOR UNKNOWN INDICATION
     Route: 065
  5. HYDROCHLOROTHIAZIDE [Concomitant]
     Indication: DRUG USE FOR UNKNOWN INDICATION
     Route: 048
  6. DIGOXIN [Concomitant]
     Indication: DRUG USE FOR UNKNOWN INDICATION
     Route: 065
  7. SLOW-K [Concomitant]
     Indication: DRUG USE FOR UNKNOWN INDICATION
     Route: 048

REACTIONS (3)
  - ARRHYTHMIA [None]
  - ATRIAL FIBRILLATION [None]
  - ATRIOVENTRICULAR BLOCK [None]
